FAERS Safety Report 13534528 (Version 1)
Quarter: 2017Q2

REPORT INFORMATION
  Report Type: Spontaneous
  Country: US (occurrence: US)
  Receive Date: 20170510
  Receipt Date: 20170510
  Transmission Date: 20170830
  Serious: Yes (Hospitalization)
  Sender: FDA-Public Use
  Company Number: None

PATIENT
  Age: 61 Year
  Sex: Female

DRUGS (10)
  1. XOLAIR [Suspect]
     Active Substance: OMALIZUMAB
     Indication: ASTHMA
     Route: 058
     Dates: start: 20140408
  2. ZYRTEC [Concomitant]
     Active Substance: CETIRIZINE HYDROCHLORIDE
  3. FORADIL [Concomitant]
     Active Substance: FORMOTEROL FUMARATE
  4. BREO ELLIPTA [Concomitant]
     Active Substance: FLUTICASONE FUROATE\VILANTEROL TRIFENATATE
  5. PLAVIX [Concomitant]
     Active Substance: CLOPIDOGREL BISULFATE
  6. BUDESONIDE. [Concomitant]
     Active Substance: BUDESONIDE
  7. ALBUTEROL. [Concomitant]
     Active Substance: ALBUTEROL
  8. NASONEX [Concomitant]
     Active Substance: MOMETASONE FUROATE
  9. ALBUTEROL. [Concomitant]
     Active Substance: ALBUTEROL
  10. ZYRTEC [Concomitant]
     Active Substance: CETIRIZINE HYDROCHLORIDE

REACTIONS (1)
  - Malaise [None]

NARRATIVE: CASE EVENT DATE: 20170506
